FAERS Safety Report 10409396 (Version 1)
Quarter: 2014Q3

REPORT INFORMATION
  Report Type: Report from Study
  Country: ZA (occurrence: ZA)
  Receive Date: 20140826
  Receipt Date: 20140826
  Transmission Date: 20150326
  Serious: Yes (Hospitalization, Disabling, Other)
  Sender: FDA-Public Use
  Company Number: ZA-BAYER-2014-055794

PATIENT
  Sex: Male

DRUGS (3)
  1. CORTISONE [Suspect]
     Active Substance: CORTISONE\HYDROCORTISONE
     Indication: MULTIPLE SCLEROSIS RELAPSE
  2. BACLOFEN. [Suspect]
     Active Substance: BACLOFEN
  3. BETAFERON [Suspect]
     Active Substance: INTERFERON BETA-1B

REACTIONS (18)
  - Headache [Recovered/Resolved]
  - Drug dose omission [None]
  - Vision blurred [None]
  - Fatigue [None]
  - Nephrolithiasis [Recovering/Resolving]
  - Multiple sclerosis [None]
  - Unevaluable event [None]
  - Drug dose omission [None]
  - Fatigue [None]
  - Fall [None]
  - Multiple sclerosis [None]
  - Fall [None]
  - Multiple sclerosis relapse [None]
  - Muscular weakness [None]
  - Cardiac disorder [None]
  - Muscular weakness [None]
  - Balance disorder [None]
  - Gait disturbance [None]

NARRATIVE: CASE EVENT DATE: 200708
